FAERS Safety Report 5271206-7 (Version None)
Quarter: 2007Q1

REPORT INFORMATION
  Report Type: 
  Country: None (occurrence: None)
  Receive Date: 20070321
  Receipt Date: 20070315
  Transmission Date: 20070707
  Serious: Yes (Death)
  Sender: FDA-Public Use
  Company Number: DE-JNJFOC-20070302457

PATIENT
  Age: 75 Year
  Sex: Female

DRUGS (4)
  1. HALDOL [Suspect]
     Indication: DRUG USE FOR UNKNOWN INDICATION
     Route: 048
  2. LORAZEPAM [Suspect]
     Indication: DRUG USE FOR UNKNOWN INDICATION
     Route: 048
  3. ATACAND [Concomitant]
     Route: 048
  4. UNACID [Concomitant]
     Route: 065

REACTIONS (1)
  - CEREBRAL HAEMORRHAGE [None]
